FAERS Safety Report 5956809-6 (Version None)
Quarter: 2008Q4

REPORT INFORMATION
  Report Type: 
  Country: None (occurrence: None)
  Receive Date: 20081031
  Receipt Date: 20080820
  Transmission Date: 20090506
  Serious: No
  Sender: FDA-Public Use
  Company Number: 2008PV036506

PATIENT
  Sex: Female

DRUGS (6)
  1. SYMLIN [Suspect]
     Indication: DIABETES MELLITUS
     Dosage: 120 MCG;TID;SC : 60 MCG;TID;SC
     Route: 058
     Dates: start: 20080601, end: 20080601
  2. SYMLIN [Suspect]
     Indication: DIABETES MELLITUS
     Dosage: 120 MCG;TID;SC : 60 MCG;TID;SC
     Route: 058
     Dates: start: 20080601
  3. SYMLIN [Suspect]
     Dosage: 180 MCG;TID;SC
     Route: 058
     Dates: start: 20080501, end: 20080601
  4. NOVOLOG [Concomitant]
  5. LANTUS [Concomitant]
  6. PLAVIX [Concomitant]

REACTIONS (4)
  - CONSTIPATION [None]
  - FEELING ABNORMAL [None]
  - FLATULENCE [None]
  - RASH [None]
